FAERS Safety Report 18900045 (Version 1)
Quarter: 2021Q1

REPORT INFORMATION
  Report Type: Spontaneous
  Country: IE (occurrence: IE)
  Receive Date: 20210216
  Receipt Date: 20210216
  Transmission Date: 20210420
  Serious: Yes (Other)
  Sender: FDA-Public Use
  Company Number: NVSC2021IE029298

PATIENT
  Age: 74 Year
  Sex: Female

DRUGS (4)
  1. SODIUM CHLORIDE. [Suspect]
     Active Substance: SODIUM CHLORIDE
     Indication: MEDICATION DILUTION
     Dosage: 230 ML (FREQUENCY: CONTINUOUS INFUSION)
     Route: 042
     Dates: start: 20201207, end: 202101
  2. PIPERACILLIN/TAZOBACTAM [Suspect]
     Active Substance: PIPERACILLIN SODIUM\TAZOBACTAM SODIUM
     Indication: JOINT PROSTHESIS USER
     Dosage: 18 G, FREQUENCY: CONTINUOUS INFUSION
     Route: 042
     Dates: start: 20201207, end: 202101
  3. PIPERACILLIN/TAZOBACTAM [Suspect]
     Active Substance: PIPERACILLIN SODIUM\TAZOBACTAM SODIUM
     Dosage: 18000 MG, 23D (FREQUENCY: CONTINUOUS INFUSION VIA 23 HOUR FOLFUSOR LV10. DOSE REINTRODUCED)
     Route: 042
     Dates: start: 20210113
  4. CITRATE [Suspect]
     Active Substance: CITRIC ACID MONOHYDRATE
     Indication: PRODUCT USED FOR UNKNOWN INDICATION
     Dosage: UNK, FREQUENCY: CONTINUOUS INFUSION. PH?6.5?7.5
     Route: 042
     Dates: start: 20201207, end: 202101

REACTIONS (3)
  - Rash [Not Recovered/Not Resolved]
  - Rash pruritic [Not Recovered/Not Resolved]
  - Catheter site rash [Not Recovered/Not Resolved]

NARRATIVE: CASE EVENT DATE: 20210107
